FAERS Safety Report 9267226 (Version 1)
Quarter: 2013Q2

REPORT INFORMATION
  Report Type: Report from Study
  Country: ES (occurrence: ES)
  Receive Date: 20130502
  Receipt Date: 20130502
  Transmission Date: 20140414
  Serious: Yes (Hospitalization)
  Sender: FDA-Public Use
  Company Number: ES-ABBOTT-13P-144-1081060-00

PATIENT
  Age: 32 Year
  Sex: Male
  Weight: 85 kg

DRUGS (1)
  1. HUMIRA [Suspect]
     Indication: PSORIASIS
     Route: 058
     Dates: start: 20110505, end: 20130212

REACTIONS (7)
  - Photophobia [Unknown]
  - Headache [Unknown]
  - Dizziness [Unknown]
  - Vertigo [Unknown]
  - Phonophobia [Unknown]
  - Paraesthesia [Unknown]
  - Asthenia [Unknown]
